FAERS Safety Report 7332832-4 (Version None)
Quarter: 2011Q1

REPORT INFORMATION
  Report Type: 
  Country: None (occurrence: None)
  Receive Date: 20110304
  Receipt Date: 20110223
  Transmission Date: 20110831
  Serious: Yes (Hospitalization, Disabling, Other)
  Sender: FDA-Public Use
  Company Number: US-MERCK-1006USA02773

PATIENT
  Age: 79 Year
  Sex: Female

DRUGS (1)
  1. FOSAMAX [Suspect]
     Indication: OSTEOARTHRITIS
     Route: 048
     Dates: start: 19950101, end: 20081101

REACTIONS (11)
  - BACK PAIN [None]
  - MEDICAL DEVICE PAIN [None]
  - LUMBAR RADICULOPATHY [None]
  - INTERVERTEBRAL DISC DEGENERATION [None]
  - ARTHROPATHY [None]
  - OSTEOARTHRITIS [None]
  - SCOLIOSIS [None]
  - FEMUR FRACTURE [None]
  - TENDONITIS [None]
  - ARTHRALGIA [None]
  - FALL [None]
